FAERS Safety Report 18991421 (Version 4)
Quarter: 2021Q1

REPORT INFORMATION
  Report Type: Report from Study
  Country: CA (occurrence: CA)
  Receive Date: 20210310
  Receipt Date: 20210323
  Transmission Date: 20210420
  Serious: Yes (Hospitalization)
  Sender: FDA-Public Use
  Company Number: CA-CELGENEUS-CAN-20210301828

PATIENT
  Age: 4 Year
  Sex: Female
  Weight: 19.5 kg

DRUGS (11)
  1. CARBOPLATIN. [Suspect]
     Active Substance: CARBOPLATIN
     Indication: EPENDYMOMA
     Dosage: 3 AUC
     Route: 065
     Dates: start: 20210223, end: 20210223
  2. PALONOSETRON. [Concomitant]
     Active Substance: PALONOSETRON HYDROCHLORIDE
     Indication: ANTIBIOTIC PROPHYLAXIS
     Dosage: .38 MILLIGRAM
     Route: 041
     Dates: start: 20210209, end: 20210209
  3. PALONOSETRON. [Concomitant]
     Active Substance: PALONOSETRON HYDROCHLORIDE
     Dosage: .38 MILLIGRAM
     Route: 041
     Dates: start: 20210223, end: 20210223
  4. FOSAPREPITANT [Concomitant]
     Active Substance: FOSAPREPITANT
     Indication: ANTIBIOTIC PROPHYLAXIS
     Dosage: 75 MILLIGRAM
     Route: 041
     Dates: start: 20210209, end: 20210209
  5. ONDANSETRON [Concomitant]
     Active Substance: ONDANSETRON
     Indication: ANTIEMETIC SUPPORTIVE CARE
     Route: 041
     Dates: start: 20210211
  6. CHLORHEX [Concomitant]
     Active Substance: CHLORHEXIDINE GLUCONATE
     Indication: PROPHYLAXIS
     Dosage: SMEAR
     Route: 048
     Dates: start: 20210208
  7. AZACITIDINE. [Suspect]
     Active Substance: AZACITIDINE
     Indication: EPENDYMOMA
     Route: 042
     Dates: start: 20210209, end: 20210215
  8. FOSAPREPITANT [Concomitant]
     Active Substance: FOSAPREPITANT
     Dosage: 75 MILLIGRAM
     Route: 041
     Dates: start: 20210223, end: 20210223
  9. ONDANSETRON [Concomitant]
     Active Substance: ONDANSETRON
     Route: 048
     Dates: start: 20210211
  10. OXYCODONE [Concomitant]
     Active Substance: OXYCODONE
     Indication: PAIN
     Route: 048
     Dates: start: 20210208
  11. TRIMETHOPRIM?SULFAMETHOXAZOLE [Concomitant]
     Active Substance: SULFAMETHOXAZOLE\TRIMETHOPRIM
     Indication: PROPHYLAXIS
     Dosage: 40?200MG/5MLS
     Route: 048
     Dates: start: 20210208

REACTIONS (1)
  - Febrile convulsion [Recovered/Resolved]

NARRATIVE: CASE EVENT DATE: 20210304
